FAERS Safety Report 4277937-X (Version None)
Quarter: 2004Q1

REPORT INFORMATION
  Report Type: 
  Country: None (occurrence: None)
  Receive Date: 20040121
  Receipt Date: 20040106
  Transmission Date: 20041129
  Serious: Yes (Hospitalization, Other)
  Sender: FDA-Public Use
  Company Number: B0319019A

PATIENT
  Sex: Female

DRUGS (2)
  1. NICODERM CQ [Suspect]
     Indication: EX-SMOKER
     Dosage: 14 MG / TRANSDERMAL
     Route: 062
     Dates: start: 20030101
  2. NICODERM CQ [Suspect]
     Indication: EX-SMOKER
     Dosage: 21 MG TRANSDERMAL
     Route: 062
     Dates: start: 20030101, end: 20030101

REACTIONS (3)
  - PHARYNGOLARYNGEAL PAIN [None]
  - RASH GENERALISED [None]
  - VASCULITIS [None]
